FAERS Safety Report 22588738 (Version 2)
Quarter: 2023Q2

REPORT INFORMATION
  Report Type: Spontaneous
  Country: PL (occurrence: PL)
  Receive Date: 20230612
  Receipt Date: 20230628
  Transmission Date: 20230722
  Serious: Yes (Other)
  Sender: FDA-Public Use
  Company Number: PL-AUROBINDO-AUR-APL-2023-041624

PATIENT
  Age: 27 Year
  Sex: Female

DRUGS (8)
  1. ALPRAZOLAM [Suspect]
     Active Substance: ALPRAZOLAM
     Indication: Product used for unknown indication
     Dosage: UNK ((AS NEEDED)
     Route: 065
  2. ARIPIPRAZOLE [Suspect]
     Active Substance: ARIPIPRAZOLE
     Indication: Product used for unknown indication
     Dosage: 15 MILLIGRAM, DAILY
     Route: 065
  3. QUETIAPINE [Suspect]
     Active Substance: QUETIAPINE
     Indication: Product used for unknown indication
     Dosage: 100 MILLIGRAM, DAILY (100 MG IN THE EVENING)
     Route: 065
  4. SERTRALINE [Suspect]
     Active Substance: SERTRALINE HYDROCHLORIDE
     Indication: Product used for unknown indication
     Dosage: 150 MILLIGRAM, DAILY ( 50 MG IN THE MORNING AND 100 MG IN THE EVENING)
     Route: 065
  5. AGOMELATINE [Concomitant]
     Active Substance: AGOMELATINE
     Indication: Product used for unknown indication
     Dosage: 50 MILLIGRAM IN THE EVENING
     Route: 065
  6. CHLORPROTHIXENE [Concomitant]
     Active Substance: CHLORPROTHIXENE
     Indication: Product used for unknown indication
     Dosage: 100 MILLIGRAM IN THE EVENING
     Route: 065
  7. DULOXETINE HYDROCHLORIDE [Concomitant]
     Active Substance: DULOXETINE HYDROCHLORIDE
     Indication: Product used for unknown indication
     Dosage: 30 MILLIGRAM
     Route: 065
  8. LAMOTRIGINE [Concomitant]
     Active Substance: LAMOTRIGINE
     Indication: Product used for unknown indication
     Dosage: 150 MILLIGRAM, TWO TIMES A DAY
     Route: 065

REACTIONS (6)
  - Drug ineffective [Unknown]
  - Therapeutic product effect incomplete [Unknown]
  - Anxiety [Recovering/Resolving]
  - Depression [Recovering/Resolving]
  - Fear [Recovering/Resolving]
  - Insomnia [Not Recovered/Not Resolved]
